FAERS Safety Report 23500410 (Version 1)
Quarter: 2024Q1

REPORT INFORMATION
  Report Type: Spontaneous
  Country: VN (occurrence: VN)
  Receive Date: 20240208
  Receipt Date: 20240208
  Transmission Date: 20240410
  Serious: Yes (Hospitalization)
  Sender: FDA-Public Use
  Company Number: VN-STRIDES ARCOLAB LIMITED-2024SP001296

PATIENT
  Age: 6 Decade

DRUGS (2)
  1. COLCHICINE [Suspect]
     Active Substance: COLCHICINE
     Indication: Gout
     Dosage: 1 MILLIGRAM DAILY
     Route: 065
  2. FEBUXOSTAT [Concomitant]
     Active Substance: FEBUXOSTAT
     Indication: Gout
     Dosage: 40 MILLIGRAM (3 WEEKS)
     Route: 065

REACTIONS (2)
  - Chronic kidney disease [Recovered/Resolved]
  - Myopathy [Recovered/Resolved]
